FAERS Safety Report 19516977 (Version 1)
Quarter: 2021Q3

REPORT INFORMATION
  Report Type: Spontaneous
  Country: CN (occurrence: CN)
  Receive Date: 20210711
  Receipt Date: 20210711
  Transmission Date: 20211014
  Serious: Yes (Hospitalization)
  Sender: FDA-Public Use
  Company Number: CN-BAXTER-2021BAX019989

PATIENT
  Age: 39 Year
  Sex: Female
  Weight: 67 kg

DRUGS (12)
  1. PACLITAXEL ALBUMIN [Suspect]
     Active Substance: PACLITAXEL
     Indication: BREAST CANCER FEMALE
     Dosage: PACLITAXEL ALBUMIN 400 MG + 0.9% SODIUM CHLORIDE 250 ML
     Route: 041
     Dates: start: 20210613, end: 20210613
  2. 0.9% SODIUM CHLORIDE INJECTION [Suspect]
     Active Substance: SODIUM CHLORIDE
     Dosage: 0.9% SODIUM CHLORIDE 250 ML + PACLITAXEL ALBUMIN 400 MG
     Route: 041
     Dates: start: 20210613, end: 20210613
  3. PIRARUBICIN HYDROCHLORIDE [Suspect]
     Active Substance: PIRARUBICIN HYDROCHLORIDE
     Indication: BREAST CANCER FEMALE
     Dosage: PIRARUBICIN HYDROCHLORIDE 80 MG + 5% GLUCOSE 250 ML
     Route: 041
     Dates: start: 20210613, end: 20210613
  4. 0.9% SODIUM CHLORIDE INJECTION [Suspect]
     Active Substance: SODIUM CHLORIDE
     Indication: MEDICATION DILUTION
     Dosage: 0.9% SODIUM CHLORIDE 250 ML + CYCLOPHOSPHAMIDE 800 MG
     Route: 041
     Dates: start: 20210613, end: 20210613
  5. 0.9% SODIUM CHLORIDE INJECTION [Suspect]
     Active Substance: SODIUM CHLORIDE
     Dosage: 0.9% SODIUM CHLORIDE + PACLITAXEL ALBUMIN (DOSE RE?INTRODUCED)
     Route: 041
  6. 5% GLUCOSE  INJECTION [Suspect]
     Active Substance: DEXTROSE
     Dosage: 5% GLUCOSE + PIRARUBICIN HYDROCHLORIDE (DOSE RE?INTRODUCED)
     Route: 041
  7. ENDOXAN [Suspect]
     Active Substance: CYCLOPHOSPHAMIDE
     Indication: BREAST CANCER FEMALE
     Dosage: CYCLOPHOSPHAMIDE 800 MG + 0.9% SODIUM CHLORIDE 250 ML
     Route: 041
     Dates: start: 20210613, end: 20210613
  8. 5% GLUCOSE  INJECTION [Suspect]
     Active Substance: DEXTROSE
     Indication: MEDICATION DILUTION
     Dosage: 5% GLUCOSE 250 ML + PIRARUBICIN HYDROCHLORIDE 80 MG
     Route: 041
     Dates: start: 20210613, end: 20210613
  9. ENDOXAN [Suspect]
     Active Substance: CYCLOPHOSPHAMIDE
     Dosage: CYCLOPHOSPHAMIDE + 0.9% SODIUM CHLORIDE (DOSE RE?INTRODUCED)
     Route: 041
     Dates: start: 202106
  10. PACLITAXEL ALBUMIN [Suspect]
     Active Substance: PACLITAXEL
     Dosage: PACLITAXEL + 0.9% SODIUM CHLORIDE (DOSE RE?INTRODUCED)
     Route: 041
  11. PIRARUBICIN HYDROCHLORIDE [Suspect]
     Active Substance: PIRARUBICIN HYDROCHLORIDE
     Dosage: 5% GLUCOSE + PIRARUBICIN HYDROCHLORIDE (DOSE RE?INTRODUCED)
     Route: 041
  12. 0.9% SODIUM CHLORIDE INJECTION [Suspect]
     Active Substance: SODIUM CHLORIDE
     Dosage: 0.9% SODIUM CHLORIDE + CYCLOPHOSPHAMIDE (DOSE RE?INTRODUCED)
     Route: 041

REACTIONS (3)
  - Pyrexia [Unknown]
  - Thrombocytopenia [Recovering/Resolving]
  - Myelosuppression [Recovering/Resolving]

NARRATIVE: CASE EVENT DATE: 20210620
